FAERS Safety Report 14013743 (Version 1)
Quarter: 2017Q3

REPORT INFORMATION
  Report Type: Spontaneous
  Country: US (occurrence: US)
  Receive Date: 20170926
  Receipt Date: 20170926
  Transmission Date: 20171128
  Serious: Yes (Hospitalization)
  Sender: FDA-Public Use
  Company Number: US-SA-2017SA182240

PATIENT
  Sex: Female

DRUGS (1)
  1. LEMTRADA [Suspect]
     Active Substance: ALEMTUZUMAB
     Route: 041
     Dates: start: 20170828, end: 20170901

REACTIONS (6)
  - Pyrexia [Unknown]
  - Abdominal pain upper [Unknown]
  - Meningitis listeria [Unknown]
  - Nausea [Unknown]
  - Dyspepsia [Unknown]
  - Pain [Unknown]
